FAERS Safety Report 5801811-8 (Version None)
Quarter: 2008Q3

REPORT INFORMATION
  Report Type: 
  Country: None (occurrence: None)
  Receive Date: 20080707
  Receipt Date: 20080623
  Transmission Date: 20090109
  Serious: Yes (Hospitalization)
  Sender: FDA-Public Use
  Company Number: FR-SANOFI-SYNTHELABO-A02200801923

PATIENT
  Age: 56 Year
  Sex: Male

DRUGS (8)
  1. LOVENOX [Concomitant]
     Indication: DRUG USE FOR UNKNOWN INDICATION
     Dosage: UNK
     Route: 058
  2. VITAMIN B6 [Concomitant]
     Indication: DRUG USE FOR UNKNOWN INDICATION
     Dosage: UNK
     Route: 065
  3. VITAMIN B1 TAB [Concomitant]
     Indication: DRUG USE FOR UNKNOWN INDICATION
     Dosage: UNK
     Route: 065
  4. RIVOTRIL [Concomitant]
     Indication: DRUG USE FOR UNKNOWN INDICATION
     Dosage: UNK
     Route: 065
  5. ROCEPHIN [Suspect]
     Indication: DRUG USE FOR UNKNOWN INDICATION
     Route: 051
     Dates: start: 20080305, end: 20080307
  6. ROCEPHIN [Suspect]
     Dosage: UNK
     Route: 042
     Dates: start: 20080318, end: 20080319
  7. TEGELINE [Suspect]
     Indication: DEMYELINATING POLYNEUROPATHY
     Route: 042
     Dates: start: 20080315, end: 20080319
  8. XATRAL LP 10 [Suspect]
     Indication: MICTURITION DISORDER
     Route: 048
     Dates: start: 20080311, end: 20080420

REACTIONS (5)
  - CHEILITIS [None]
  - ERYTHRODERMIC PSORIASIS [None]
  - EXFOLIATIVE RASH [None]
  - IMPETIGO [None]
  - RASH VESICULAR [None]
